FAERS Safety Report 13996455 (Version 1)
Quarter: 2017Q3

REPORT INFORMATION
  Report Type: Spontaneous
  Country: ES (occurrence: ES)
  Receive Date: 20170921
  Receipt Date: 20170921
  Transmission Date: 20171128
  Serious: Yes (Life-Threatening, Hospitalization)
  Sender: FDA-Public Use
  Company Number: ES-SA-2017SA172862

PATIENT
  Age: 57 Year
  Sex: Female

DRUGS (1)
  1. RIFALDIN [Suspect]
     Active Substance: RIFAMPIN
     Indication: POSTOPERATIVE CARE
     Route: 042
     Dates: start: 201602

REACTIONS (10)
  - Mobility decreased [Recovered/Resolved]
  - Hypersensitivity [Unknown]
  - Cholelithiasis [Not Recovered/Not Resolved]
  - Epistaxis [Recovered/Resolved]
  - Alopecia [Recovered/Resolved]
  - Coma [Recovered/Resolved with Sequelae]
  - Diarrhoea [Not Recovered/Not Resolved]
  - Onychomadesis [Recovered/Resolved]
  - Multiple organ dysfunction syndrome [Recovered/Resolved]
  - Vomiting [Recovered/Resolved]

NARRATIVE: CASE EVENT DATE: 2016
